FAERS Safety Report 19166968 (Version 2)
Quarter: 2021Q3

REPORT INFORMATION
  Report Type: Spontaneous
  Country: US (occurrence: US)
  Receive Date: 20210421
  Receipt Date: 20210730
  Transmission Date: 20211014
  Serious: Yes (Hospitalization, Other)
  Sender: FDA-Public Use
  Company Number: US-TEVA-2021-US-1903589

PATIENT
  Age: 58 Year
  Sex: Male
  Weight: 99.88 kg

DRUGS (5)
  1. AMLODIPINE W/VALSARTAN TEVA [Suspect]
     Active Substance: AMLODIPINE\VALSARTAN
     Indication: HYPERTENSION
     Dosage: 1 DOSAGE FORMS DAILY; 5MG/160MG
     Route: 065
     Dates: start: 201512, end: 2017
  2. AMLODIPINE W/VALSARTAN TEVA [Suspect]
     Active Substance: AMLODIPINE\VALSARTAN
     Dosage: 1 DOSAGE FORMS DAILY; 5MG/160MG
     Route: 065
     Dates: start: 201512, end: 2017
  3. AMLODIPINE/VALSARTAN ALEMBIC [Suspect]
     Active Substance: AMLODIPINE\VALSARTAN
     Indication: HYPERTENSION
     Dosage: 5MG/160MG
     Route: 065
     Dates: start: 201707, end: 2018
  4. TESTOSTERONE. [Concomitant]
     Active Substance: TESTOSTERONE
     Indication: BLOOD TESTOSTERONE DECREASED
     Dates: start: 2015
  5. AMLODIPINE [Concomitant]
     Active Substance: AMLODIPINE BESYLATE
     Indication: HYPERTENSION
     Dates: start: 201509, end: 2019

REACTIONS (7)
  - Pain [Unknown]
  - Body temperature fluctuation [Unknown]
  - Adenocarcinoma of colon [Unknown]
  - Nausea [Unknown]
  - Lung neoplasm malignant [Unknown]
  - Hepatic cancer metastatic [Unknown]
  - Headache [Unknown]

NARRATIVE: CASE EVENT DATE: 20190410
